FAERS Safety Report 24348945 (Version 2)
Quarter: 2024Q4

REPORT INFORMATION
  Report Type: Spontaneous
  Country: US (occurrence: US)
  Receive Date: 20240923
  Receipt Date: 20241008
  Transmission Date: 20250114
  Serious: No
  Sender: ABBVIE
  Company Number: US-ABBVIE-5932893

PATIENT
  Sex: Female
  Weight: 52 kg

DRUGS (1)
  1. LO LOESTRIN FE [Suspect]
     Active Substance: ETHINYL ESTRADIOL\NORETHINDRONE ACETATE
     Indication: Contraception
     Route: 048
     Dates: start: 202404, end: 20240919

REACTIONS (5)
  - Gastrointestinal mucosal disorder [Recovering/Resolving]
  - Irritable bowel syndrome [Recovering/Resolving]
  - Food allergy [Unknown]
  - Abdominal pain upper [Recovering/Resolving]
  - Unevaluable event [Unknown]

NARRATIVE: CASE EVENT DATE: 20240101
